FAERS Safety Report 4325728-3 (Version None)
Quarter: 2004Q1

REPORT INFORMATION
  Report Type: 
  Country: None (occurrence: None)
  Receive Date: 20040324
  Receipt Date: 20040312
  Transmission Date: 20041129
  Serious: Yes (Other)
  Sender: FDA-Public Use
  Company Number: US-JNJFOC-20040201073

PATIENT
  Age: 72 Year
  Sex: Female

DRUGS (50)
  1. REMICADE [Suspect]
     Indication: ANKYLOSING SPONDYLITIS
     Dosage: 3 MG/KG, INTRAVENOUS
     Route: 042
     Dates: start: 20020515
  2. REMICADE [Suspect]
     Indication: CROHN'S DISEASE
     Dosage: 3 MG/KG, INTRAVENOUS
     Route: 042
     Dates: start: 20020515
  3. REMICADE [Suspect]
     Indication: ANKYLOSING SPONDYLITIS
     Dosage: 3 MG/KG, INTRAVENOUS
     Route: 042
     Dates: start: 20020820
  4. REMICADE [Suspect]
     Indication: CROHN'S DISEASE
     Dosage: 3 MG/KG, INTRAVENOUS
     Route: 042
     Dates: start: 20020820
  5. REMICADE [Suspect]
     Indication: ANKYLOSING SPONDYLITIS
     Dosage: 3 MG/KG, INTRAVENOUS
     Route: 042
     Dates: start: 20020903
  6. REMICADE [Suspect]
     Indication: CROHN'S DISEASE
     Dosage: 3 MG/KG, INTRAVENOUS
     Route: 042
     Dates: start: 20020903
  7. REMICADE [Suspect]
     Indication: ANKYLOSING SPONDYLITIS
     Dosage: 3 MG/KG, INTRAVENOUS
     Route: 042
     Dates: start: 20020930
  8. REMICADE [Suspect]
     Indication: CROHN'S DISEASE
     Dosage: 3 MG/KG, INTRAVENOUS
     Route: 042
     Dates: start: 20020930
  9. REMICADE [Suspect]
     Indication: ANKYLOSING SPONDYLITIS
     Dosage: 3 MG/KG, INTRAVENOUS
     Route: 042
     Dates: start: 20021126
  10. REMICADE [Suspect]
     Indication: CROHN'S DISEASE
     Dosage: 3 MG/KG, INTRAVENOUS
     Route: 042
     Dates: start: 20021126
  11. REMICADE [Suspect]
     Indication: ANKYLOSING SPONDYLITIS
     Dosage: 3 MG/KG, INTRAVENOUS
     Route: 042
     Dates: start: 20030121
  12. REMICADE [Suspect]
     Indication: CROHN'S DISEASE
     Dosage: 3 MG/KG, INTRAVENOUS
     Route: 042
     Dates: start: 20030121
  13. REMICADE [Suspect]
     Indication: ANKYLOSING SPONDYLITIS
     Dosage: 3 MG/KG, INTRAVENOUS
     Route: 042
     Dates: start: 20030318
  14. REMICADE [Suspect]
     Indication: CROHN'S DISEASE
     Dosage: 3 MG/KG, INTRAVENOUS
     Route: 042
     Dates: start: 20030318
  15. REMICADE [Suspect]
     Indication: ANKYLOSING SPONDYLITIS
     Dosage: 3 MG/KG, INTRAVENOUS
     Route: 042
     Dates: start: 20030702
  16. REMICADE [Suspect]
     Indication: CROHN'S DISEASE
     Dosage: 3 MG/KG, INTRAVENOUS
     Route: 042
     Dates: start: 20030702
  17. REMICADE [Suspect]
     Indication: ANKYLOSING SPONDYLITIS
     Dosage: 3 MG/KG, INTRAVENOUS
     Route: 042
     Dates: start: 20030922
  18. REMICADE [Suspect]
     Indication: CROHN'S DISEASE
     Dosage: 3 MG/KG, INTRAVENOUS
     Route: 042
     Dates: start: 20030922
  19. REMICADE [Suspect]
     Indication: ANKYLOSING SPONDYLITIS
     Dosage: 3 MG/KG, INTRAVENOUS
     Route: 042
     Dates: start: 20031118
  20. REMICADE [Suspect]
     Indication: CROHN'S DISEASE
     Dosage: 3 MG/KG, INTRAVENOUS
     Route: 042
     Dates: start: 20031118
  21. REMICADE [Suspect]
  22. REMICADE [Suspect]
  23. REMICADE [Suspect]
  24. REMICADE [Suspect]
  25. REMICADE [Suspect]
  26. REMICADE [Suspect]
  27. REMICADE [Suspect]
  28. REMICADE [Suspect]
  29. REMICADE [Suspect]
  30. REMICADE [Suspect]
  31. METHOTREXATE [Suspect]
  32. ACTONEL [Concomitant]
  33. PRILOSEC [Concomitant]
  34. CARDIZEM [Concomitant]
  35. ALTACE [Concomitant]
  36. LESCOL [Concomitant]
  37. SYNTHROID [Concomitant]
  38. DARVOCET [Concomitant]
  39. TRANXENE [Concomitant]
  40. DILTIAZEM [Concomitant]
  41. COLACE (DOCUSATE SODIUM) [Concomitant]
  42. PROTONIX [Concomitant]
  43. PREDNISONE [Concomitant]
  44. CALCIUM WITH VITAMIN D (CALCIUM WITH VITAMIN D) [Concomitant]
  45. VITAMIN E [Concomitant]
  46. SIMETHICONE (DIMETICONE, ACTIVATED) [Concomitant]
  47. TRUSOPT [Concomitant]
  48. XALATAN [Concomitant]
  49. FLONASE [Concomitant]
  50. DOMPERIDONE (DOMPERIDONE) [Concomitant]

REACTIONS (24)
  - ABDOMINAL PAIN [None]
  - ANOREXIA [None]
  - ARTHRITIS [None]
  - BACK PAIN [None]
  - BLOOD SODIUM DECREASED [None]
  - BONE PAIN [None]
  - CATARACT [None]
  - CATHETER RELATED INFECTION [None]
  - DRUG INTOLERANCE [None]
  - DYSPNOEA [None]
  - ECCHYMOSIS [None]
  - HISTOPLASMOSIS [None]
  - INTESTINAL OBSTRUCTION [None]
  - MUSCULOSKELETAL STIFFNESS [None]
  - NAUSEA [None]
  - NODAL OSTEOARTHRITIS [None]
  - OSTEOPOROSIS [None]
  - POLLAKIURIA [None]
  - POST PROCEDURAL COMPLICATION [None]
  - ROTATOR CUFF SYNDROME [None]
  - TREATMENT NONCOMPLIANCE [None]
  - URINARY TRACT INFECTION [None]
  - VOMITING [None]
  - WEIGHT DECREASED [None]
